FAERS Safety Report 8943236 (Version 3)
Quarter: 2013Q1

REPORT INFORMATION
  Report Type: Spontaneous
  Country: US (occurrence: US)
  Receive Date: 20121204
  Receipt Date: 20130123
  Transmission Date: 20140127
  Serious: No
  Sender: FDA-Public Use
  Company Number: US-009507513-1211USA009994

PATIENT
  Age: 63 Year
  Sex: Male

DRUGS (3)
  1. VICTRELIS [Suspect]
     Indication: CHRONIC HEPATITIS C
     Dosage: 800 MG, TID
     Route: 048
     Dates: start: 20121107
  2. RIBAPAK [Suspect]
     Dosage: 600 MG, BID
     Route: 048
     Dates: start: 20121024
  3. PEGASYS [Suspect]
     Dosage: 180 MICROGRAM, QW
     Route: 058
     Dates: start: 20121024

REACTIONS (3)
  - Abdominal pain [Unknown]
  - Irritability [Unknown]
  - Fatigue [Not Recovered/Not Resolved]
